FAERS Safety Report 13913258 (Version 1)
Quarter: 2017Q3

REPORT INFORMATION
  Report Type: Spontaneous
  Country: US (occurrence: US)
  Receive Date: 20170828
  Receipt Date: 20170828
  Transmission Date: 20171127
  Serious: No
  Sender: FDA-Public Use
  Company Number: US-ROCHE-1128941

PATIENT
  Sex: Male
  Weight: 81.9 kg

DRUGS (4)
  1. NUTROPIN [Suspect]
     Active Substance: SOMATROPIN
     Indication: DWARFISM
     Route: 065
     Dates: start: 2001
  2. GENOTROPIN [Concomitant]
     Active Substance: SOMATROPIN
     Route: 065
     Dates: start: 2002
  3. NUTROPIN [Suspect]
     Active Substance: SOMATROPIN
     Indication: GROWTH HORMONE DEFICIENCY
     Route: 065
     Dates: start: 200503
  4. TESTOSTERONE. [Concomitant]
     Active Substance: TESTOSTERONE
     Route: 065

REACTIONS (8)
  - Eczema [Unknown]
  - Fatigue [Unknown]
  - Insomnia [Unknown]
  - Blood testosterone decreased [Unknown]
  - Blood cholesterol increased [Unknown]
  - High density lipoprotein decreased [Unknown]
  - Libido decreased [Unknown]
  - Dyspnoea exertional [Unknown]
